FAERS Safety Report 8596962-1 (Version None)
Quarter: 2012Q3

REPORT INFORMATION
  Report Type: 
  Country: None (occurrence: None)
  Receive Date: 20120815
  Receipt Date: 20120511
  Transmission Date: 20120928
  Serious: Yes (Other)
  Sender: FDA-Public Use
  Company Number: US-ALLERGAN-1206789US

PATIENT

DRUGS (1)
  1. OZURDEX [Suspect]
     Indication: UVEITIS
     Dosage: UNK
     Route: 031

REACTIONS (3)
  - OCULAR HYPERTENSION [None]
  - INTRAOCULAR PRESSURE INCREASED [None]
  - HYPOTONY OF EYE [None]
